FAERS Safety Report 7420850-7 (Version None)
Quarter: 2011Q2

REPORT INFORMATION
  Report Type: 
  Country: None (occurrence: None)
  Receive Date: 20110418
  Receipt Date: 20110413
  Transmission Date: 20111010
  Serious: Yes (Hospitalization)
  Sender: FDA-Public Use
  Company Number: PHHY2011US31438

PATIENT
  Age: 61 Year
  Sex: Female
  Weight: 66 kg

DRUGS (8)
  1. SIMVASTATIN [Concomitant]
     Dosage: 40 MG, DAILY
     Route: 048
     Dates: start: 20100422
  2. RESTASIS [Concomitant]
     Dosage: 0.05 G, UNK
     Route: 047
     Dates: start: 20100428
  3. TIZANIDINE [Concomitant]
  4. METHYLPHENIDATE [Concomitant]
     Dosage: 20 MG, TID
     Route: 048
     Dates: start: 20100101
  5. KADIAN ^KNOLL^ [Concomitant]
     Indication: PAIN
  6. INTERFERON BETA-1B [Suspect]
     Indication: MULTIPLE SCLEROSIS
     Dosage: 0.3 MG, DAILY
     Route: 058
     Dates: start: 19950402
  7. EYE DROPS [Concomitant]
  8. LOVAZA [Concomitant]
     Dosage: 4000 MG, DAILY
     Route: 048
     Dates: start: 20040102

REACTIONS (1)
  - VISUAL ACUITY REDUCED [None]
